FAERS Safety Report 7569710-1 (Version None)
Quarter: 2011Q2

REPORT INFORMATION
  Report Type: 
  Country: None (occurrence: None)
  Receive Date: 20110624
  Receipt Date: 20110621
  Transmission Date: 20111010
  Serious: No
  Sender: FDA-Public Use
  Company Number: US-PFIZER INC-2011118879

PATIENT
  Age: 52 Year
  Sex: Female

DRUGS (5)
  1. NORCO [Concomitant]
     Dosage: 10 MG, UNK
     Dates: start: 20100701
  2. RESTORIL [Concomitant]
     Dosage: 15 MG, UNK
     Dates: start: 20100701
  3. IMITREX [Concomitant]
     Dosage: 100 MG, UNK
     Dates: start: 20091001
  4. CELEBREX [Suspect]
     Dosage: 200 MG, 1X/DAY
     Route: 048
     Dates: start: 20110427, end: 20110517
  5. SOMA [Concomitant]
     Dosage: 350 MG, UNK
     Dates: start: 20100701

REACTIONS (1)
  - ALOPECIA [None]
